FAERS Safety Report 13307601 (Version 3)
Quarter: 2017Q3

REPORT INFORMATION
  Report Type: Report from Study
  Country: US (occurrence: US)
  Receive Date: 20170308
  Receipt Date: 20170724
  Transmission Date: 20171127
  Serious: Yes (Other)
  Sender: FDA-Public Use
  Company Number: US-TEVA-746548USA

PATIENT
  Age: 26 Year
  Sex: Female

DRUGS (1)
  1. CLARAVIS [Suspect]
     Active Substance: ISOTRETINOIN
     Dosage: 40 MILLIGRAM DAILY;
     Route: 065
     Dates: start: 20170203, end: 20170301

REACTIONS (2)
  - Abortion spontaneous [Unknown]
  - Unintended pregnancy [Unknown]

NARRATIVE: CASE EVENT DATE: 201702
